FAERS Safety Report 22222674 (Version 3)
Quarter: 2023Q2

REPORT INFORMATION
  Report Type: Report from Study
  Country: US (occurrence: None)
  Receive Date: 20230418
  Receipt Date: 20230608
  Transmission Date: 20230722
  Serious: Yes (Other)
  Sender: FDA-Public Use
  Company Number: US-ROCHE-3327945

PATIENT
  Age: 79 Year
  Sex: Male
  Weight: 77.3 kg

DRUGS (13)
  1. RANIBIZUMAB [Suspect]
     Active Substance: RANIBIZUMAB
     Indication: Neovascular age-related macular degeneration
     Dosage: DOSE OF STUDY DRUG FIRST ADMINISTERED: 100 MG/ML?DOSE LAST STUDY DRUG ADMIN PRIOR SAE: 100 MG/ML?STA
     Route: 050
     Dates: start: 20201022
  2. RANIBIZUMAB [Suspect]
     Active Substance: RANIBIZUMAB
  3. RANIBIZUMAB [Suspect]
     Active Substance: RANIBIZUMAB
  4. RANIBIZUMAB [Suspect]
     Active Substance: RANIBIZUMAB
  5. RANIBIZUMAB [Suspect]
     Active Substance: RANIBIZUMAB
  6. RANIBIZUMAB [Concomitant]
     Active Substance: RANIBIZUMAB
     Indication: Neovascular age-related macular degeneration
     Dosage: DOSE OF STUDY DRUG FIRST ADMINISTERED: 10 MG/ML?DOSE LAST STUDY DRUG ADMIN PRIOR AE AND SAE: 10 MG/M
     Route: 050
     Dates: start: 20210805
  7. CETIRIZINE [Concomitant]
     Active Substance: CETIRIZINE HYDROCHLORIDE
     Indication: Seasonal allergy
     Route: 048
     Dates: start: 2008
  8. OFLOXACIN [Concomitant]
     Active Substance: OFLOXACIN
     Route: 047
     Dates: start: 20181211
  9. OFLOXACIN [Concomitant]
     Active Substance: OFLOXACIN
     Route: 047
     Dates: start: 20220818
  10. OFLOXACIN [Concomitant]
     Active Substance: OFLOXACIN
     Route: 065
     Dates: start: 20230224
  11. ATORVASTATIN [Concomitant]
     Active Substance: ATORVASTATIN
     Indication: Blood cholesterol increased
     Route: 048
     Dates: start: 20210801
  12. PLAVIX [Concomitant]
     Active Substance: CLOPIDOGREL BISULFATE
     Indication: Coronary artery occlusion
     Route: 048
     Dates: start: 20230203
  13. METOPROLOL TARTRATE [Concomitant]
     Active Substance: METOPROLOL TARTRATE
     Indication: Hypertension
     Route: 048
     Dates: start: 20230203

REACTIONS (2)
  - Device issue [Unknown]
  - No adverse event [Unknown]

NARRATIVE: CASE EVENT DATE: 20230406
